FAERS Safety Report 19330836 (Version 2)
Quarter: 2021Q2

REPORT INFORMATION
  Report Type: Spontaneous
  Country: FR (occurrence: FR)
  Receive Date: 20210528
  Receipt Date: 20210617
  Transmission Date: 20210717
  Serious: Yes (Hospitalization, Other)
  Sender: FDA-Public Use
  Company Number: NVSC2021FR120512

PATIENT
  Age: 80 Year
  Sex: Female

DRUGS (4)
  1. OMEPRAZOLE. [Suspect]
     Active Substance: OMEPRAZOLE
     Indication: GASTROOESOPHAGEAL REFLUX DISEASE
     Dosage: UNK
     Route: 065
  2. CANDESARTAN. [Suspect]
     Active Substance: CANDESARTAN
     Indication: HYPERTENSION
     Dosage: UNK
     Route: 065
  3. HYDROCHLOROTHIAZIDE. [Suspect]
     Active Substance: HYDROCHLOROTHIAZIDE
     Indication: HYPERTENSION
     Dosage: UNK
     Route: 065
  4. IBUPROFEN. [Suspect]
     Active Substance: IBUPROFEN
     Indication: OSTEOARTHRITIS
     Dosage: UNK, PRN (AS NEEDED)
     Route: 065

REACTIONS (9)
  - Visceral leishmaniasis [Recovered/Resolved]
  - Leishmaniasis [Unknown]
  - Hyponatraemia [Unknown]
  - Acute kidney injury [Unknown]
  - Asthenia [Recovered/Resolved]
  - Epstein-Barr virus infection reactivation [Not Recovered/Not Resolved]
  - Pancytopenia [Unknown]
  - Anaemia [Recovered/Resolved]
  - Dehydration [Unknown]
